FAERS Safety Report 21502464 (Version 1)
Quarter: 2022Q4

REPORT INFORMATION
  Report Type: Spontaneous
  Country: US (occurrence: US)
  Receive Date: 20221025
  Receipt Date: 20221025
  Transmission Date: 20230113
  Serious: Yes (Life-Threatening, Hospitalization, Other)
  Sender: FDA-Public Use
  Company Number: US-drreddys-LIT/USA/22/0156145

PATIENT
  Age: 27 Year
  Sex: Male

DRUGS (3)
  1. FLUCONAZOLE [Suspect]
     Active Substance: FLUCONAZOLE
     Indication: Coccidioidomycosis
  2. POSACONAZOLE [Suspect]
     Active Substance: POSACONAZOLE
     Indication: Coccidioidomycosis
  3. POSACONAZOLE [Suspect]
     Active Substance: POSACONAZOLE
     Indication: Disease recurrence

REACTIONS (7)
  - Drug ineffective [Unknown]
  - Pneumonia [Not Recovered/Not Resolved]
  - Haemoptysis [Unknown]
  - Coccidioidomycosis [Unknown]
  - Disease recurrence [Unknown]
  - Bronchopleural fistula [Unknown]
  - Pneumothorax [Unknown]
